FAERS Safety Report 4764938-8 (Version None)
Quarter: 2005Q3

REPORT INFORMATION
  Report Type: 
  Country: None (occurrence: None)
  Receive Date: 20050909
  Receipt Date: 20050523
  Transmission Date: 20060218
  Serious: Yes (Other)
  Sender: FDA-Public Use
  Company Number: US-ROCHE-405702

PATIENT
  Age: 16 Year

DRUGS (3)
  1. ACCUTANE [Suspect]
     Indication: DRUG USE FOR UNKNOWN INDICATION
     Route: 048
     Dates: start: 20021111, end: 20030116
  2. ACCUTANE [Suspect]
     Dosage: 40 MG IN THE MORNING AND 20 MG IN THE EVENING
     Route: 048
     Dates: start: 20030116
  3. ORTHO TRI-CYCLEN [Concomitant]
     Route: 048
     Dates: start: 20030116

REACTIONS (5)
  - DEPRESSION [None]
  - IMPULSIVE BEHAVIOUR [None]
  - INTENTIONAL MISUSE [None]
  - OVERDOSE [None]
  - SUICIDE ATTEMPT [None]
